FAERS Safety Report 21971433 (Version 1)
Quarter: 2023Q1

REPORT INFORMATION
  Report Type: Spontaneous
  Country: IN (occurrence: IN)
  Receive Date: 20230209
  Receipt Date: 20230209
  Transmission Date: 20230418
  Serious: Yes (Death, Hospitalization)
  Sender: FDA-Public Use
  Company Number: IN-drreddys-LIT/IND/23/0160807

PATIENT
  Age: 28 Year
  Sex: Male

DRUGS (13)
  1. CARVEDILOL [Suspect]
     Active Substance: CARVEDILOL
     Indication: Hypertension
  2. SODIUM CHLORIDE [Suspect]
     Active Substance: SODIUM CHLORIDE
     Indication: Product used for unknown indication
  3. DEXTROSE [Suspect]
     Active Substance: DEXTROSE
     Indication: Product used for unknown indication
  4. FUROSEMIDE [Suspect]
     Active Substance: FUROSEMIDE
     Indication: Product used for unknown indication
     Route: 042
  5. MANNITOL [Suspect]
     Active Substance: MANNITOL
     Indication: Product used for unknown indication
  6. LACTULOSE [Suspect]
     Active Substance: LACTULOSE
     Indication: Product used for unknown indication
  7. PREDNISOLONE [Suspect]
     Active Substance: PREDNISOLONE
     Indication: Steroid therapy
  8. PIPERACILLIN SODIUM\TAZOBACTAM SODIUM [Suspect]
     Active Substance: PIPERACILLIN SODIUM\TAZOBACTAM SODIUM
     Indication: Antibiotic therapy
  9. DOXYCYCLINE [Suspect]
     Active Substance: DOXYCYCLINE
     Indication: Antibiotic therapy
  10. METRONIDAZOLE [Suspect]
     Active Substance: METRONIDAZOLE
     Indication: Antibiotic therapy
  11. RIFAXIMIN [Suspect]
     Active Substance: RIFAXIMIN
     Indication: Antibiotic therapy
  12. VITAMIN K [Suspect]
     Active Substance: PHYTONADIONE
     Indication: Product used for unknown indication
  13. AZATHIOPRINE [Suspect]
     Active Substance: AZATHIOPRINE
     Indication: Immunosuppressant drug therapy

REACTIONS (8)
  - Death [Fatal]
  - Autoimmune hepatitis [Unknown]
  - Disease progression [Unknown]
  - COVID-19 [Unknown]
  - Renal impairment [Unknown]
  - Hepatic encephalopathy [Unknown]
  - Liver injury [Unknown]
  - Drug ineffective [Unknown]
